FAERS Safety Report 9096466 (Version 1)
Quarter: 2013Q1

REPORT INFORMATION
  Report Type: Spontaneous
  Country: US (occurrence: US)
  Receive Date: 20130211
  Receipt Date: 20130211
  Transmission Date: 20140127
  Serious: Yes (Death)
  Sender: FDA-Public Use
  Company Number: PHEH2013US003138

PATIENT
  Sex: Male

DRUGS (1)
  1. GLEEVEC [Suspect]
     Indication: METASTATIC NEOPLASM
     Dosage: 400 MG, PER DAY
     Route: 048
     Dates: start: 20080418

REACTIONS (1)
  - Death [Fatal]
